FAERS Safety Report 7885195-X (Version None)
Quarter: 2011Q4

REPORT INFORMATION
  Report Type: 
  Country: None (occurrence: None)
  Receive Date: 20111102
  Receipt Date: 20111028
  Transmission Date: 20120403
  Serious: Yes (Life-Threatening, Other)
  Sender: FDA-Public Use
  Company Number: NL-PFIZER INC-2011140527

PATIENT
  Age: 58 Year
  Sex: Female
  Weight: 67 kg

DRUGS (3)
  1. LANTUS [Concomitant]
     Indication: TYPE 1 DIABETES MELLITUS
     Dosage: 22 UNITS BEFORE THE NIGHT
  2. ACTRAPID [Concomitant]
     Indication: TYPE 1 DIABETES MELLITUS
     Dosage: 6, 4 AND 16 UNITS BEFORE MEALS
  3. VARENICLINE TARTRATE [Suspect]
     Indication: SMOKING CESSATION THERAPY
     Dosage: 0.5 MG, 1X/DAY
     Dates: start: 20110422

REACTIONS (4)
  - SNEEZING [None]
  - HYPOGLYCAEMIA [None]
  - FALL [None]
  - MOTOR DYSFUNCTION [None]
